FAERS Safety Report 16132372 (Version 17)
Quarter: 2022Q1

REPORT INFORMATION
  Report Type: Report from Study
  Country: NL (occurrence: NL)
  Receive Date: 20190329
  Receipt Date: 20220207
  Transmission Date: 20220423
  Serious: Yes (Hospitalization, Other)
  Sender: FDA-Public Use
  Company Number: NL-ABBVIE-19S-114-2722361-00

PATIENT
  Sex: Female

DRUGS (8)
  1. CARBIDOPA\LEVODOPA [Suspect]
     Active Substance: CARBIDOPA\LEVODOPA
     Indication: Parkinson^s disease
     Dosage: MD 6.0 CD 4.2 ED 1.8
     Route: 050
     Dates: start: 20190118
  2. CARBIDOPA\LEVODOPA [Suspect]
     Active Substance: CARBIDOPA\LEVODOPA
     Dosage: MD 7.0 ML, CD 4.2 ML/H, ED 1.8 ML, REMAINS AT 16 HOURS
     Route: 050
  3. CARBIDOPA\LEVODOPA [Suspect]
     Active Substance: CARBIDOPA\LEVODOPA
     Dosage: MD 8.0 ML, CD 4.2 ML/H, ED 1.8 ML, REMAINED AT 16 HOURS
     Route: 050
  4. CARBIDOPA\LEVODOPA [Suspect]
     Active Substance: CARBIDOPA\LEVODOPA
     Dosage: MD 8.0 ML; CD 4.2 ML/H; ED 2.1 ML; CND 2.1 ML/H; END 1.0 ML
     Route: 050
  5. CARBIDOPA\LEVODOPA [Suspect]
     Active Substance: CARBIDOPA\LEVODOPA
     Dosage: MD 7.5 ML; CD 4.0 ML/H; ED 2.1 ML
     Route: 050
  6. POLYETHYLENE GLYCOLS [Concomitant]
     Active Substance: POLYETHYLENE GLYCOLS
     Indication: Abnormal faeces
  7. OMEPRAZOLE [Concomitant]
     Active Substance: OMEPRAZOLE
     Indication: Gastrooesophageal reflux disease
  8. BENSERAZIDE HYDROCHLORIDE\LEVODOPA [Concomitant]
     Active Substance: BENSERAZIDE HYDROCHLORIDE\LEVODOPA
     Indication: Parkinson^s disease

REACTIONS (48)
  - Abdominal abscess [Recovered/Resolved]
  - Fibroma [Recovered/Resolved]
  - Fibroma [Recovered/Resolved]
  - Injury [Recovered/Resolved]
  - Memory impairment [Not Recovered/Not Resolved]
  - Arthralgia [Not Recovered/Not Resolved]
  - Feeling abnormal [Not Recovered/Not Resolved]
  - Gastric infection [Recovered/Resolved]
  - Medical device site pain [Recovered/Resolved]
  - Speech disorder [Not Recovered/Not Resolved]
  - Restlessness [Not Recovered/Not Resolved]
  - Device leakage [Recovered/Resolved]
  - Tongue disorder [Not Recovered/Not Resolved]
  - Panic reaction [Not Recovered/Not Resolved]
  - Feeling abnormal [Not Recovered/Not Resolved]
  - Feeling abnormal [Recovered/Resolved]
  - Malaise [Not Recovered/Not Resolved]
  - Fatigue [Not Recovered/Not Resolved]
  - Gait disturbance [Not Recovered/Not Resolved]
  - Hypoaesthesia [Not Recovered/Not Resolved]
  - Pyrexia [Unknown]
  - Dyspepsia [Not Recovered/Not Resolved]
  - Pain [Unknown]
  - Constipation [Recovered/Resolved]
  - Abdominal distension [Not Recovered/Not Resolved]
  - Dyskinesia [Recovered/Resolved]
  - Hyperkinesia [Recovered/Resolved]
  - Bradykinesia [Not Recovered/Not Resolved]
  - Malaise [Recovered/Resolved]
  - Stoma site discharge [Recovered/Resolved]
  - Stoma site discharge [Recovered/Resolved]
  - Stoma site pain [Recovered/Resolved]
  - Stoma site induration [Not Recovered/Not Resolved]
  - Stoma site inflammation [Recovered/Resolved]
  - Stoma site inflammation [Recovered/Resolved]
  - Stoma site pain [Recovered/Resolved]
  - Parkinson^s disease [Unknown]
  - Drug ineffective [Recovered/Resolved]
  - Unevaluable event [Unknown]
  - Hallucination [Not Recovered/Not Resolved]
  - On and off phenomenon [Recovered/Resolved]
  - Muscle rigidity [Not Recovered/Not Resolved]
  - Hallucination, auditory [Not Recovered/Not Resolved]
  - Dyskinesia [Not Recovered/Not Resolved]
  - On and off phenomenon [Unknown]
  - Hyperkinesia [Recovered/Resolved]
  - Weight increased [Recovered/Resolved]
  - Malaise [Not Recovered/Not Resolved]

NARRATIVE: CASE EVENT DATE: 20190101
